FAERS Safety Report 17162174 (Version 1)
Quarter: 2019Q4

REPORT INFORMATION
  Report Type: Spontaneous
  Country: DE (occurrence: DE)
  Receive Date: 20191217
  Receipt Date: 20191217
  Transmission Date: 20200122
  Serious: Yes (Other)
  Sender: FDA-Public Use
  Company Number: DE-TEVA-2019-DE-1119547

PATIENT
  Age: 68 Year
  Sex: Female
  Weight: 50 kg

DRUGS (6)
  1. MIRTAZAPIN-RATIOPHARM 15 MG FILMTABLETTEN [Suspect]
     Active Substance: MIRTAZAPINE
     Indication: SLEEP DISORDER
     Dosage: 15 MILLIGRAM DAILY; IN THE EVENING
     Route: 048
     Dates: start: 2015
  2. HYDROMORPHONE [Concomitant]
     Active Substance: HYDROMORPHONE
  3. VITAMIN D/ CALCIUM [Concomitant]
  4. METFORMIN [Concomitant]
     Active Substance: METFORMIN HYDROCHLORIDE
  5. RAMIPRIL. [Concomitant]
     Active Substance: RAMIPRIL
  6. PROLIA [Concomitant]
     Active Substance: DENOSUMAB

REACTIONS (5)
  - Arthralgia [Not Recovered/Not Resolved]
  - Osteoarthritis [Not Recovered/Not Resolved]
  - Gait disturbance [Not Recovered/Not Resolved]
  - Bone erosion [Not Recovered/Not Resolved]
  - Bone disorder [Not Recovered/Not Resolved]

NARRATIVE: CASE EVENT DATE: 201904
